FAERS Safety Report 4846393-2 (Version None)
Quarter: 2005Q4

REPORT INFORMATION
  Report Type: 
  Country: None (occurrence: None)
  Receive Date: 20051115
  Receipt Date: 20050726
  Transmission Date: 20060501
  Serious: No
  Sender: FDA-Public Use
  Company Number: S05-USA-03629-01

PATIENT
  Age: 55 Year
  Sex: Male

DRUGS (4)
  1. NAMENDA [Suspect]
     Indication: AMNESIA
     Dosage: 5 MG QD PO
     Route: 048
     Dates: start: 20050713, end: 20050719
  2. NAMENDA [Suspect]
     Indication: AMNESIA
     Dosage: 5 MG BID PO
     Route: 048
     Dates: start: 20050720
  3. LIPITOR [Concomitant]
  4. FOSAMAX [Concomitant]

REACTIONS (2)
  - FATIGUE [None]
  - TOOTHACHE [None]
